FAERS Safety Report 13778589 (Version 2)
Quarter: 2017Q3

REPORT INFORMATION
  Report Type: Spontaneous
  Country: IR (occurrence: IR)
  Receive Date: 20170721
  Receipt Date: 20170821
  Transmission Date: 20171127
  Serious: Yes (Life-Threatening, Other)
  Sender: FDA-Public Use
  Company Number: IR-CONCORDIA PHARMACEUTICALS INC.-E2B_00008238

PATIENT
  Age: 36 Year
  Sex: Male

DRUGS (9)
  1. PREDNISOLONE. [Suspect]
     Active Substance: PREDNISOLONE
  2. PREDNISOLONE. [Suspect]
     Active Substance: PREDNISOLONE
     Dates: start: 201410
  3. PREDNISOLONE. [Suspect]
     Active Substance: PREDNISOLONE
     Indication: PEMPHIGUS
     Dates: start: 201311
  4. PREDNISOLONE. [Suspect]
     Active Substance: PREDNISOLONE
     Dates: start: 201402
  5. PREDNISOLONE. [Suspect]
     Active Substance: PREDNISOLONE
     Dates: start: 2014
  6. PREDNISOLONE. [Suspect]
     Active Substance: PREDNISOLONE
     Dates: start: 201401
  7. MYCOPHENOLATE MOFETIL. [Suspect]
     Active Substance: MYCOPHENOLATE MOFETIL
     Dates: start: 2014, end: 201410
  8. PREDNISOLONE. [Suspect]
     Active Substance: PREDNISOLONE
     Dates: start: 2014, end: 201410
  9. MYCOPHENOLATE MOFETIL. [Suspect]
     Active Substance: MYCOPHENOLATE MOFETIL
     Indication: PEMPHIGUS
     Dates: start: 201406

REACTIONS (2)
  - Hepatitis B reactivation [Recovered/Resolved]
  - Drug ineffective [Recovered/Resolved]

NARRATIVE: CASE EVENT DATE: 201403
